FAERS Safety Report 4796535-2 (Version None)
Quarter: 2005Q3

REPORT INFORMATION
  Report Type: 
  Country: None (occurrence: None)
  Receive Date: 20050916
  Receipt Date: 20040924
  Transmission Date: 20060218
  Serious: Yes (Other)
  Sender: FDA-Public Use
  Company Number: US-JNJFOC-20040908974

PATIENT
  Age: 56 Year
  Sex: Female
  Weight: 116.5744 kg

DRUGS (5)
  1. TOPAMAX [Suspect]
     Indication: WEIGHT LOSS DIET
     Dosage: 100 MG, 2 IN 1 DAY, ORAL
     Route: 048
  2. ZOLOFT [Concomitant]
  3. WELLBUTRIN [Concomitant]
  4. LASIX [Concomitant]
  5. CELEBREX [Concomitant]

REACTIONS (1)
  - WEIGHT DECREASED [None]
